FAERS Safety Report 10681848 (Version 1)
Quarter: 2014Q4

REPORT INFORMATION
  Report Type: Spontaneous
  Country: GB (occurrence: None)
  Receive Date: 20141224
  Receipt Date: 20141224
  Transmission Date: 20150529
  Serious: Yes (Other)
  Sender: FDA-Public Use
  Company Number: FK201406429

PATIENT
  Age: 11 Year
  Sex: Male
  Weight: 54.1 kg

DRUGS (3)
  1. IRINOTECAN [Suspect]
     Active Substance: IRINOTECAN
     Indication: PRODUCT USED FOR UNKNOWN INDICATION
     Dosage: 200 MG, INTRAVNOUS (NOT OTHERWISE SPECIFIED)
     Route: 042
     Dates: start: 20141128, end: 20141128
  2. POTASSIUM [Suspect]
     Active Substance: POTASSIUM
  3. DESMOPRESSIN [Suspect]
     Active Substance: DESMOPRESSIN

REACTIONS (5)
  - Cholinergic syndrome [None]
  - Urinary incontinence [None]
  - Hyperhidrosis [None]
  - Malaise [None]
  - Dizziness [None]

NARRATIVE: CASE EVENT DATE: 20141128
